FAERS Safety Report 8385504 (Version 3)
Quarter: 2013Q4

REPORT INFORMATION
  Report Type: Spontaneous
  Country: GB (occurrence: GB)
  Receive Date: 20120202
  Receipt Date: 20131107
  Transmission Date: 20140711
  Serious: Yes (Life-Threatening)
  Sender: FDA-Public Use
  Company Number: GB-WATSON-2012-00852

PATIENT
  Age: 35 Year
  Sex: Female
  Weight: 83 kg

DRUGS (5)
  1. VALPROIC ACID (UNKNOWN) [Suspect]
     Indication: BIPOLAR DISORDER
     Dosage: 200 MG, BID
     Route: 048
     Dates: start: 20111219, end: 20120101
  2. ZOPICLONE (UNKNOWN) [Suspect]
     Indication: SLEEP DISORDER
     Dosage: 3.75 MG, UNK
     Route: 048
     Dates: start: 20111222, end: 20120101
  3. SEROQUEL [Concomitant]
     Indication: MOOD SWINGS
     Route: 048
     Dates: start: 201107, end: 20111218
  4. ESCITALOPRAM [Concomitant]
     Indication: ANXIETY
     Dosage: 5 MG, QAM
     Route: 048
     Dates: start: 2010, end: 20111218
  5. PROPRANOLOL [Concomitant]
     Indication: ANXIETY
     Dosage: 80 MG, UNK
     Route: 048
     Dates: start: 201109, end: 20111218

REACTIONS (5)
  - Dysphagia [Recovered/Resolved]
  - Rash macular [Recovered/Resolved]
  - Rash erythematous [Recovered/Resolved]
  - Swelling [Recovered/Resolved]
  - Pruritus [Recovered/Resolved]
